FAERS Safety Report 16583816 (Version 1)
Quarter: 2019Q3

REPORT INFORMATION
  Report Type: Spontaneous
  Country: DE (occurrence: DE)
  Receive Date: 20190717
  Receipt Date: 20190717
  Transmission Date: 20191004
  Serious: Yes (Hospitalization, Other)
  Sender: FDA-Public Use
  Company Number: DE-TEVA-2019-DE-1077115

PATIENT
  Age: 81 Year
  Sex: Female

DRUGS (22)
  1. PREGABALIN. [Concomitant]
     Active Substance: PREGABALIN
     Dosage: 50 MG, 1-0-1-0
  2. CYANOCOBALAMIN. [Concomitant]
     Active Substance: CYANOCOBALAMIN
     Dosage: NK MG, 0-1-0-0
  3. DIGITOXIN [Concomitant]
     Active Substance: DIGITOXIN
     Dosage: 0.07 MG, 1-0-0-0
  4. CLOPIDOGREL [Suspect]
     Active Substance: CLOPIDOGREL BISULFATE
     Dosage: 75 MG, 0-1-0-0
  5. LEVEMIR [Concomitant]
     Active Substance: INSULIN DETEMIR
     Dosage: NK MG, NK
  6. LEVODOPA 100/25 [Concomitant]
     Dosage: 100|25 MG, 0-0-1-0
  7. ASS 100 [Suspect]
     Active Substance: ASPIRIN
     Dosage: 100 MG, 1-0-0-0
  8. PANTOPRAZOL [Concomitant]
     Active Substance: PANTOPRAZOLE SODIUM
     Dosage: 40 MG, 1-0-1-0
  9. VALSARTAN. [Concomitant]
     Active Substance: VALSARTAN
     Dosage: 80 MG, 1-0-0-0
  10. XIPAMID [Suspect]
     Active Substance: XIPAMIDE
     Dosage: 20 MG, 0.5-0-0.5-0
  11. ABSTRAL [Suspect]
     Active Substance: FENTANYL CITRATE
     Dosage: 0.2 MG, NEED
  12. CLONIDIN [Concomitant]
     Active Substance: CLONIDINE
     Dosage: 75 MG, 1-1-1-0
  13. MOVICOL [Concomitant]
     Active Substance: POLYETHYLENE GLYCOL 3350\POTASSIUM CHLORIDE\SODIUM BICARBONATE\SODIUM CHLORIDE
     Dosage: NK MG, NEED
  14. METAMIZOL [Concomitant]
     Active Substance: METAMIZOLE SODIUM
     Dosage: 500 MG, 1-1-1-0
  15. FUROSEMID [Suspect]
     Active Substance: FUROSEMIDE
     Dosage: NK MG, 0.5-0-0-0
  16. TRANSTEC [Suspect]
     Active Substance: BUPRENORPHINE
     Dosage: 52.5 MICROGRAM, CHANGE EVERY 3D
  17. MAGNESIUM [Concomitant]
     Active Substance: MAGNESIUM
     Dosage: NK MG, 0-0-1-0
  18. GINKOBIL [Concomitant]
     Active Substance: GINKGO
     Dosage: 240 MG, 1-0-1-0
  19. NOVORAPID [Concomitant]
     Active Substance: INSULIN ASPART
     Dosage: NK MG, ACCORDING TO PLAN
  20. LEVOTHYROXIN-NATRIUM [Concomitant]
     Active Substance: LEVOTHYROXINE SODIUM
     Dosage: 100 MICROGRAM, 1-0-0-0
  21. METOPROLOL. [Concomitant]
     Active Substance: METOPROLOL
     Dosage: 47.5 MG, 0.5-0-0.5-0
  22. CIPROFLOXACIN. [Concomitant]
     Active Substance: CIPROFLOXACIN
     Dosage: 250 MG, 1-0-1-0 (SINCE 23.06.2017)

REACTIONS (3)
  - Syncope [Unknown]
  - Anaemia [Unknown]
  - Dehydration [Unknown]
